FAERS Safety Report 7956564-4 (Version None)
Quarter: 2011Q4

REPORT INFORMATION
  Report Type: 
  Country: None (occurrence: None)
  Receive Date: 20111205
  Receipt Date: 20111124
  Transmission Date: 20120403
  Serious: Yes (Hospitalization)
  Sender: FDA-Public Use
  Company Number: ES-JNJFOC-20110808182

PATIENT
  Age: 38 Year
  Sex: Female
  Weight: 51 kg

DRUGS (8)
  1. REMICADE [Suspect]
     Indication: CROHN'S DISEASE
     Route: 042
     Dates: start: 20110914
  2. CIPROFLOXACIN [Concomitant]
     Indication: CROHN'S DISEASE
     Dates: start: 20110816
  3. CORTICOSTEROID NOS [Concomitant]
     Indication: CROHN'S DISEASE
     Dates: start: 20110816
  4. AZATHIOPRINE [Concomitant]
     Indication: CROHN'S DISEASE
     Dates: start: 20070629
  5. METRONIDAZOLE [Concomitant]
     Indication: CROHN'S DISEASE
     Dates: start: 20110816
  6. OMEPRAZOLE [Concomitant]
     Indication: GASTROINTESTINAL DISORDER THERAPY
     Dates: start: 20110816
  7. IRON [Concomitant]
     Indication: ANAEMIA
     Dates: start: 20100119
  8. REMICADE [Suspect]
     Route: 042
     Dates: start: 20110712

REACTIONS (2)
  - EPIGASTRIC DISCOMFORT [None]
  - PERITONEAL TUBERCULOSIS [None]
